FAERS Safety Report 18918505 (Version 1)
Quarter: 2021Q1

REPORT INFORMATION
  Report Type: Spontaneous
  Country: US (occurrence: US)
  Receive Date: 20210219
  Receipt Date: 20210219
  Transmission Date: 20210420
  Serious: Yes (Hospitalization, Other)
  Sender: FDA-Public Use
  Company Number: US-ROCHE-2703486

PATIENT
  Age: 75 Year
  Sex: Male

DRUGS (1)
  1. XELODA [Suspect]
     Active Substance: CAPECITABINE
     Indication: PRODUCT USED FOR UNKNOWN INDICATION
     Route: 048
     Dates: start: 20200917

REACTIONS (14)
  - Dysphagia [Unknown]
  - Pancreatitis [Unknown]
  - Decreased appetite [Unknown]
  - Metabolic acidosis [Unknown]
  - Hyponatraemia [Unknown]
  - Malaise [Unknown]
  - Atrial fibrillation [Unknown]
  - Stomatitis [Unknown]
  - Throat irritation [Unknown]
  - Abscess oral [Unknown]
  - Stomatitis [Unknown]
  - Diarrhoea [Unknown]
  - Sepsis [Unknown]
  - Hypotension [Unknown]

NARRATIVE: CASE EVENT DATE: 20201012
